FAERS Safety Report 12413123 (Version 2)
Quarter: 2016Q3

REPORT INFORMATION
  Report Type: Report from Study
  Country: NL (occurrence: NL)
  Receive Date: 20160527
  Receipt Date: 20160805
  Transmission Date: 20161109
  Serious: Yes (Death, Other)
  Sender: FDA-Public Use
  Company Number: NL-AMGEN-NLDSL2016066708

PATIENT
  Age: 64 Year
  Sex: Female
  Weight: 53 kg

DRUGS (2)
  1. XGEVA [Suspect]
     Active Substance: DENOSUMAB
     Indication: PROPHYLAXIS
     Dosage: 120 MG,/1.70 ML UNK
     Route: 065
     Dates: start: 20160304
  2. XGEVA [Suspect]
     Active Substance: DENOSUMAB
     Dosage: UNK
     Route: 065

REACTIONS (2)
  - Terminal state [Fatal]
  - Disease progression [Unknown]

NARRATIVE: CASE EVENT DATE: 20160522
